FAERS Safety Report 6678595-7 (Version None)
Quarter: 2010Q2

REPORT INFORMATION
  Report Type: 
  Country: None (occurrence: None)
  Receive Date: 20100412
  Receipt Date: 20100412
  Transmission Date: 20101027
  Serious: No
  Sender: FDA-Public Use
  Company Number: None

PATIENT
  Age: 57 Year
  Sex: Male
  Weight: 76.2 kg

DRUGS (10)
  1. WARFARIN SODIUM [Suspect]
     Indication: ATRIAL FLUTTER
     Dosage: 5MG PO QD
     Route: 048
  2. ASPIRIN [Concomitant]
  3. DIGITEK [Concomitant]
  4. EPLERENONE [Concomitant]
  5. LASIX [Concomitant]
  6. IMDUR [Concomitant]
  7. LEVOTHYROXINE [Concomitant]
  8. POTASSIUM CHLORIDE [Concomitant]
  9. TRANDOLAPRIL [Concomitant]
  10. ZAROXOLYN [Concomitant]

REACTIONS (4)
  - CARDIAC FAILURE [None]
  - HAEMOGLOBIN DECREASED [None]
  - INTERNATIONAL NORMALISED RATIO INCREASED [None]
  - MELAENA [None]
